FAERS Safety Report 5021780-0 (Version None)
Quarter: 2006Q2

REPORT INFORMATION
  Report Type: 
  Country: None (occurrence: None)
  Receive Date: 20060605
  Receipt Date: 20060519
  Transmission Date: 20061013
  Serious: Yes (Death)
  Sender: FDA-Public Use
  Company Number: COT_0504_2006

PATIENT
  Age: 17 Year
  Sex: Female
  Weight: 64.9 kg

DRUGS (13)
  1. VENTAVIS [Suspect]
     Indication: PULMONARY HYPERTENSION
     Dosage: 2.5 MCG 6XD IH
     Route: 055
     Dates: start: 20050712
  2. TRACLEER [Concomitant]
  3. PLAQUENIL [Concomitant]
  4. MULTI-VITAMIN [Concomitant]
  5. TUMS [Concomitant]
  6. COUMADIN [Concomitant]
  7. ADVAIR DISKUS 100/50 [Concomitant]
  8. CALCITRIOL [Concomitant]
  9. BACTRIM [Concomitant]
  10. LASIX [Concomitant]
  11. DIGOXIN [Concomitant]
  12. PREDNISONE [Concomitant]
  13. ALOE VERA [Concomitant]

REACTIONS (1)
  - ACUTE MYOCARDIAL INFARCTION [None]
